FAERS Safety Report 23525113 (Version 2)
Quarter: 2024Q1

REPORT INFORMATION
  Report Type: Report from Study
  Country: IN (occurrence: IN)
  Receive Date: 20240215
  Receipt Date: 20240322
  Transmission Date: 20240410
  Serious: Yes (Other)
  Sender: FDA-Public Use
  Company Number: IN-002147023-NVSC2024IN029339

PATIENT
  Sex: Female

DRUGS (3)
  1. RIBOCICLIB [Suspect]
     Active Substance: RIBOCICLIB
     Indication: Breast cancer metastatic
     Dosage: 400 MG, QD (ONCE DAILY)
     Route: 048
     Dates: start: 20231109
  2. RIBOCICLIB [Suspect]
     Active Substance: RIBOCICLIB
     Indication: Breast cancer
  3. RIBOCICLIB [Suspect]
     Active Substance: RIBOCICLIB
     Indication: Triple negative breast cancer

REACTIONS (6)
  - Pulmonary fibrosis [Unknown]
  - Breast injury [Unknown]
  - Osteopenia [Unknown]
  - Axillary mass [Unknown]
  - Pulmonary mass [Unknown]
  - Rash [Unknown]
